FAERS Safety Report 13863357 (Version 2)
Quarter: 2018Q1

REPORT INFORMATION
  Report Type: Report from Study
  Country: US (occurrence: US)
  Receive Date: 20170814
  Receipt Date: 20180305
  Transmission Date: 20180508
  Serious: Yes (Hospitalization, Other)
  Sender: FDA-Public Use
  Company Number: US-BAYER-2017-148990

PATIENT
  Age: 59 Year
  Sex: Female
  Weight: 69.1 kg

DRUGS (2)
  1. REGORAFENIB [Suspect]
     Active Substance: REGORAFENIB
     Indication: ADENOCARCINOMA PANCREAS
     Dosage: 120 MG, QD, 21 DAYS
     Route: 048
     Dates: start: 20160915
  2. GEMCITABINE [Suspect]
     Active Substance: GEMCITABINE\GEMCITABINE HYDROCHLORIDE
     Indication: ADENOCARCINOMA PANCREAS
     Dosage: 600 MG/M2, D1, 8, 15
     Route: 042
     Dates: start: 20160915

REACTIONS (6)
  - Metastases to bone [None]
  - Abdominal pain [None]
  - Colitis [None]
  - Diarrhoea [None]
  - Nausea [Recovered/Resolved]
  - Hepatic vein thrombosis [Recovering/Resolving]

NARRATIVE: CASE EVENT DATE: 20161010
